FAERS Safety Report 4566320-5 (Version None)
Quarter: 2005Q1

REPORT INFORMATION
  Report Type: 
  Country: None (occurrence: None)
  Receive Date: 20050126
  Receipt Date: 20050126
  Transmission Date: 20050727
  Serious: No
  Sender: FDA-Public Use
  Company Number: None

PATIENT
  Age: 59 Year
  Sex: Female
  Weight: 54.8852 kg

DRUGS (1)
  1. RESTYLANE [Suspect]
     Indication: SKIN WRINKLING

REACTIONS (3)
  - INJECTION SITE REACTION [None]
  - INJECTION SITE SWELLING [None]
  - SWELLING FACE [None]
